FAERS Safety Report 23296297 (Version 1)
Quarter: 2023Q4

REPORT INFORMATION
  Report Type: Report from Study
  Country: US (occurrence: US)
  Receive Date: 20231214
  Receipt Date: 20231214
  Transmission Date: 20240110
  Serious: Yes (Other)
  Sender: FDA-Public Use
  Company Number: US-ABBVIE-5535777

PATIENT
  Age: 48 Year
  Sex: Male

DRUGS (2)
  1. HUMIRA [Suspect]
     Active Substance: ADALIMUMAB
     Indication: Product used for unknown indication
     Dosage: FORM STRENGTH: 40 MG
     Route: 058
     Dates: start: 20171011
  2. HUMIRA [Suspect]
     Active Substance: ADALIMUMAB
     Dosage: FORM STRENGTH: 40 MG
     Route: 058
     Dates: start: 2023

REACTIONS (9)
  - Glaucoma [Unknown]
  - Eye disorder [Recovering/Resolving]
  - Blindness [Unknown]
  - Cataract [Unknown]
  - Injection site vesicles [Unknown]
  - Device issue [Unknown]
  - Device issue [Unknown]
  - Injection site discharge [Unknown]
  - Injection site bruising [Unknown]

NARRATIVE: CASE EVENT DATE: 20171011
